FAERS Safety Report 7038428-6 (Version None)
Quarter: 2010Q4

REPORT INFORMATION
  Report Type: 
  Country: None (occurrence: None)
  Receive Date: 20101011
  Receipt Date: 20100409
  Transmission Date: 20110411
  Serious: No
  Sender: FDA-Public Use
  Company Number: US-PFIZER INC-2010035816

PATIENT
  Sex: Female
  Weight: 93 kg

DRUGS (10)
  1. GABAPENTIN [Suspect]
     Indication: NEUROPATHY PERIPHERAL
     Dosage: 300 MG, 3X/DAY
     Route: 048
     Dates: start: 20100111, end: 20100216
  2. GABAPENTIN [Suspect]
     Indication: PAIN
  3. NAPROXEN [Concomitant]
     Dosage: UNK
  4. SEROQUEL [Concomitant]
     Dosage: UNK
  5. NORCO [Concomitant]
     Dosage: 325/5, UNK
  6. CYMBALTA [Concomitant]
     Dosage: UNK
  7. TRAZODONE HYDROCHLORIDE [Concomitant]
     Dosage: UNK
  8. ULTRAM [Concomitant]
     Dosage: UNK
  9. PREDNISONE [Concomitant]
     Dosage: UNK
  10. SYMBICORT [Concomitant]
     Dosage: UNK

REACTIONS (1)
  - DRUG INEFFECTIVE [None]
